FAERS Safety Report 9094075 (Version 2)
Quarter: 2013Q1

REPORT INFORMATION
  Report Type: Spontaneous
  Country: NZ (occurrence: NZ)
  Receive Date: 20130201
  Receipt Date: 20130221
  Transmission Date: 20140127
  Serious: Yes (Other)
  Sender: FDA-Public Use
  Company Number: NZ-ROCHE-1185423

PATIENT
  Sex: Female

DRUGS (10)
  1. HERCEPTIN [Suspect]
     Indication: BREAST CANCER
     Route: 065
     Dates: start: 20120620, end: 20121030
  2. EPIRUBICIN [Concomitant]
     Dosage: LAST OF 3 CYCLES 30/MAY/2012
     Route: 065
     Dates: start: 20120418
  3. 5-FLUOROURACIL [Concomitant]
     Dosage: LAST OF 3 CYCLES 30/MAY/2012
     Route: 065
     Dates: start: 20120418
  4. CYCLOPHOSPHAMIDE [Concomitant]
     Dosage: LAST OF 3 CYCLES 30/MAY/2012
     Route: 065
     Dates: start: 20120418
  5. DOCETAXEL [Concomitant]
     Dosage: LAST OF 3 CYCLES 08/AUG/2012
     Route: 065
     Dates: start: 20120620
  6. NEULASTIM [Concomitant]
     Dosage: OF 3 CYCLES 24/JUN/2012
     Route: 065
  7. DEXAMETHASON [Concomitant]
     Dosage: STOPPED ON DAY 3 OF EACH CYCLE
     Route: 065
  8. ONDANSETRON [Concomitant]
     Dosage: STOPPED ON DAY 3 OF EACH CYCLE
     Route: 065
  9. PARACETAMOL [Concomitant]
  10. CODEINE [Concomitant]

REACTIONS (3)
  - Generalised oedema [Recovered/Resolved]
  - Wheezing [Recovered/Resolved]
  - Cough [Recovered/Resolved]
